FAERS Safety Report 8610848 (Version 2)
Quarter: 2014Q1

REPORT INFORMATION
  Report Type: Report from Study
  Country: US (occurrence: US)
  Receive Date: 20120612
  Receipt Date: 20140211
  Transmission Date: 20141002
  Serious: Yes (Hospitalization)
  Sender: FDA-Public Use
  Company Number: US-ACTELION-A-NJ2012-66728

PATIENT
  Age: 93 Year
  Sex: Female

DRUGS (3)
  1. TRACLEER [Suspect]
     Indication: PULMONARY ARTERIAL HYPERTENSION
     Dosage: 62.5 MG, UNK
     Route: 048
  2. REVATIO [Concomitant]
  3. COUMADIN [Concomitant]
     Dosage: UNK

REACTIONS (7)
  - Constipation [Unknown]
  - Respiratory tract infection [Unknown]
  - Local swelling [Unknown]
  - Headache [Unknown]
  - Palpitations [Unknown]
  - Oedema [Unknown]
  - Hypotension [Unknown]
